FAERS Safety Report 7545556-5 (Version None)
Quarter: 2011Q2

REPORT INFORMATION
  Report Type: 
  Country: None (occurrence: None)
  Receive Date: 20110525
  Receipt Date: 20110126
  Transmission Date: 20111010
  Serious: No
  Sender: FDA-Public Use
  Company Number: 322339

PATIENT
  Age: 54 Year
  Sex: Female

DRUGS (1)
  1. VICTOZA [Suspect]
     Indication: TYPE 2 DIABETES MELLITUS
     Dosage: SUBCUTANEOUS
     Route: 058

REACTIONS (8)
  - ABDOMINAL PAIN UPPER [None]
  - DIPLOPIA [None]
  - BLOOD GLUCOSE INCREASED [None]
  - DIZZINESS [None]
  - EUPHORIC MOOD [None]
  - MALAISE [None]
  - CONSTIPATION [None]
  - SWELLING [None]
